FAERS Safety Report 4408246-3 (Version None)
Quarter: 2004Q3

REPORT INFORMATION
  Report Type: 
  Country: None (occurrence: None)
  Receive Date: 20040726
  Receipt Date: 20040726
  Transmission Date: 20050211
  Serious: Yes (Hospitalization)
  Sender: FDA-Public Use
  Company Number: None

PATIENT
  Age: 54 Year
  Sex: Female

DRUGS (2)
  1. IRESSA [Suspect]
     Dosage: 250 MG QD   ORAL
     Route: 048
  2. CELEBREX [Suspect]
     Dosage: 400 MG BID   ORAL
     Route: 048

REACTIONS (1)
  - DYSPNOEA [None]
